FAERS Safety Report 25850608 (Version 1)
Quarter: 2025Q3

REPORT INFORMATION
  Report Type: Report from Study
  Country: US (occurrence: US)
  Receive Date: 20250926
  Receipt Date: 20250926
  Transmission Date: 20251021
  Serious: Yes (Hospitalization)
  Sender: GILEAD
  Company Number: US-GILEAD-2025-0729413

PATIENT
  Age: 26 Year
  Sex: Female

DRUGS (24)
  1. AZTREONAM LYSINE [Suspect]
     Active Substance: AZTREONAM LYSINE
     Indication: Cystic fibrosis
     Dosage: 1 DOSAGE FORM, TID (CONTINUOUSLY EVERY MONTH  )
     Route: 055
     Dates: start: 20150828
  2. AZTREONAM LYSINE [Suspect]
     Active Substance: AZTREONAM LYSINE
     Dosage: 1 DOSAGE FORM, TID (28 DAYS ON, THEN 28 DAYS OFF )
     Route: 055
     Dates: start: 20220524
  3. ADVAIR HFA [Concomitant]
     Active Substance: FLUTICASONE PROPIONATE\SALMETEROL XINAFOATE
  4. VITAMIN D3 [Concomitant]
     Active Substance: CHOLECALCIFEROL
  5. CREON [Concomitant]
     Active Substance: PANCRELIPASE AMYLASE\PANCRELIPASE LIPASE\PANCRELIPASE PROTEASE
  6. SODIUM CHLORIDE [Concomitant]
     Active Substance: SODIUM CHLORIDE
  7. VENTOLIN HFA [Concomitant]
     Active Substance: ALBUTEROL SULFATE
  8. ALBUTEROL [Concomitant]
     Active Substance: ALBUTEROL
  9. DOXYCYCLINE [Concomitant]
     Active Substance: DOXYCYCLINE
  10. LEVOFLOXACIN [Concomitant]
     Active Substance: LEVOFLOXACIN
  11. BUDESONIDE [Concomitant]
     Active Substance: BUDESONIDE
  12. CALCIUM ACETATE [Concomitant]
     Active Substance: CALCIUM ACETATE
  13. CARVEDILOL [Concomitant]
     Active Substance: CARVEDILOL
  14. CLONIDINE [Concomitant]
     Active Substance: CLONIDINE
  15. DULOXETINE [Concomitant]
     Active Substance: DULOXETINE
  16. ENVARSUS XR [Concomitant]
     Active Substance: TACROLIMUS
  17. IPRATROPIUM [Concomitant]
     Active Substance: IPRATROPIUM
  18. MONTELUKAST [Concomitant]
     Active Substance: MONTELUKAST
  19. NOVOLOG [Concomitant]
     Active Substance: INSULIN ASPART
  20. POSACONAZOLE [Concomitant]
     Active Substance: POSACONAZOLE
  21. PREDNISONE [Concomitant]
     Active Substance: PREDNISONE
  22. SULFAMETHOXAZOLE\TRIMETHOPRIM [Concomitant]
     Active Substance: SULFAMETHOXAZOLE\TRIMETHOPRIM
  23. TACROLIMUS [Concomitant]
     Active Substance: TACROLIMUS
  24. VALGANCICLOVIR [Concomitant]
     Active Substance: VALGANCICLOVIR

REACTIONS (9)
  - Haemoptysis [Not Recovered/Not Resolved]
  - Fatigue [Not Recovered/Not Resolved]
  - Sleep disorder [Unknown]
  - Loss of personal independence in daily activities [Unknown]
  - Sputum discoloured [Unknown]
  - Wheezing [Unknown]
  - Dyspnoea [Unknown]
  - Flatulence [Unknown]
  - Product use issue [Recovered/Resolved]
